FAERS Safety Report 4985934-1 (Version None)
Quarter: 2006Q1

REPORT INFORMATION
  Report Type: 
  Country: None (occurrence: None)
  Receive Date: 20060309
  Receipt Date: 20051031
  Transmission Date: 20060701
  Serious: Yes (Other)
  Sender: FDA-Public Use
  Company Number: 423306

PATIENT
  Age: 56 Year
  Sex: Female

DRUGS (1)
  1. ACCUTANE [Suspect]
     Indication: LOCALISED INFECTION
     Dosage: ORAL
     Route: 048
     Dates: start: 20050809, end: 20050915

REACTIONS (1)
  - BLOOD TRIGLYCERIDES INCREASED [None]
